FAERS Safety Report 14346690 (Version 2)
Quarter: 2018Q1

REPORT INFORMATION
  Report Type: Spontaneous
  Country: US (occurrence: US)
  Receive Date: 20180103
  Receipt Date: 20180104
  Transmission Date: 20180509
  Serious: Yes (Other)
  Sender: FDA-Public Use
  Company Number: US-PFIZER INC-2017550637

PATIENT
  Age: 72 Year
  Sex: Male

DRUGS (2)
  1. LIDOCAINE HCL [Suspect]
     Active Substance: LIDOCAINE HYDROCHLORIDE
     Dosage: 3 ML, UNK (3 CC, THORACIC EPIDURAL AT T7-T8 INTERSPACE)
     Route: 008
  2. EPINEPHRINE. [Suspect]
     Active Substance: EPINEPHRINE
     Dosage: UNK (1:200,000, THORACIC EPIDURAL AT T7-T8 INTERSPACE)
     Route: 008

REACTIONS (1)
  - Hypotension [Unknown]
